FAERS Safety Report 7170471-9 (Version None)
Quarter: 2010Q4

REPORT INFORMATION
  Report Type: 
  Country: None (occurrence: None)
  Receive Date: 20101123
  Receipt Date: 20100922
  Transmission Date: 20110411
  Serious: No
  Sender: FDA-Public Use
  Company Number: 019184

PATIENT
  Sex: Female
  Weight: 94.3 kg

DRUGS (3)
  1. CIMZIA [Suspect]
     Indication: RHEUMATOID ARTHRITIS
     Dosage: (400 MG 1X/MONTH SUBCUTANEOUS)
     Route: 058
     Dates: start: 20100910
  2. METHOTREXATE [Concomitant]
  3. OMEPRAZOLE [Concomitant]

REACTIONS (2)
  - FATIGUE [None]
  - ORAL HERPES [None]
